FAERS Safety Report 6122308-4 (Version None)
Quarter: 2009Q1

REPORT INFORMATION
  Report Type: 
  Country: None (occurrence: None)
  Receive Date: 20090316
  Receipt Date: 20090309
  Transmission Date: 20090719
  Serious: Yes (Death, Other)
  Sender: FDA-Public Use
  Company Number: 2009JP001335

PATIENT
  Age: 69 Year
  Sex: Male

DRUGS (2)
  1. FUNGUARD (MICAFUNGIN) INJECTION [Suspect]
     Indication: FUNGAL INFECTION
     Dosage: 200 MG, /D, IV DRIP
     Route: 041
     Dates: start: 20090306, end: 20090308
  2. TARGOCID [Suspect]
     Indication: STAPHYLOCOCCAL INFECTION
     Dosage: 500 MG, /D, IV DRIP
     Route: 041
     Dates: start: 20090306, end: 20090308

REACTIONS (2)
  - BRAIN DEATH [None]
  - THROMBOCYTOPENIA [None]
